FAERS Safety Report 6968653-1 (Version None)
Quarter: 2010Q3

REPORT INFORMATION
  Report Type: 
  Country: None (occurrence: None)
  Receive Date: 20100901
  Receipt Date: 20100819
  Transmission Date: 20110219
  Serious: Yes (Other)
  Sender: FDA-Public Use
  Company Number: JPI-P-009478

PATIENT
  Age: 34 Year
  Sex: Female
  Weight: 48.0813 kg

DRUGS (7)
  1. XYREM [Suspect]
     Indication: HYPERSOMNIA
     Dosage: SEE IMAGE
     Route: 048
     Dates: start: 20100131, end: 20100101
  2. XYREM [Suspect]
     Indication: HYPERSOMNIA
     Dosage: SEE IMAGE
     Route: 048
     Dates: start: 20100107, end: 20100117
  3. XYREM [Suspect]
     Indication: HYPERSOMNIA
     Dosage: SEE IMAGE
     Route: 048
     Dates: start: 20100118, end: 20100128
  4. XYREM [Suspect]
     Indication: HYPERSOMNIA
     Dosage: SEE IMAGE
     Route: 048
     Dates: start: 20100129, end: 20100130
  5. XYREM [Suspect]
     Indication: HYPERSOMNIA
     Dosage: SEE IMAGE
     Route: 048
     Dates: start: 20100101, end: 20100711
  6. METHYLPHENIDATE [Concomitant]
  7. PRENATAL VITAMINS [Concomitant]

REACTIONS (10)
  - BURNING SENSATION [None]
  - CAESAREAN SECTION [None]
  - DRUG EXPOSURE DURING PREGNANCY [None]
  - DYSGEUSIA [None]
  - FEELING ABNORMAL [None]
  - HYPERHIDROSIS [None]
  - PLACENTA PRAEVIA [None]
  - POLLAKIURIA [None]
  - RETCHING [None]
  - VOMITING [None]
